FAERS Safety Report 6770418-0 (Version None)
Quarter: 2010Q2

REPORT INFORMATION
  Report Type: 
  Country: None (occurrence: None)
  Receive Date: 20100615
  Receipt Date: 20100603
  Transmission Date: 20101027
  Serious: No
  Sender: FDA-Public Use
  Company Number: US-B.I. PHARMACEUTICALS,INC./RIDGEFIELD-2010-BP-06282BP

PATIENT
  Sex: Female

DRUGS (6)
  1. CATAPRES-TTS-1 [Suspect]
     Indication: HYPERTENSION
     Dosage: 0.3 MG
     Route: 061
     Dates: start: 19990101
  2. CARDIZEM CD [Concomitant]
  3. ASPIRIN [Concomitant]
  4. ZESTRIL [Concomitant]
  5. GLYBURIDE [Concomitant]
  6. LANOXIN [Concomitant]

REACTIONS (3)
  - DRY MOUTH [None]
  - EYE PAIN [None]
  - INSOMNIA [None]
